FAERS Safety Report 7290765-6 (Version None)
Quarter: 2011Q1

REPORT INFORMATION
  Report Type: 
  Country: None (occurrence: None)
  Receive Date: 20110201
  Receipt Date: 20110125
  Transmission Date: 20110831
  Serious: Yes (Death, Hospitalization)
  Sender: FDA-Public Use
  Company Number: 2010AC000094

PATIENT
  Age: 82 Year
  Sex: Male

DRUGS (11)
  1. HEPARIN [Concomitant]
  2. PLAVIX [Concomitant]
  3. ACTIVASE [Concomitant]
  4. DIGOXIN [Suspect]
     Indication: ATRIAL FIBRILLATION
     Dosage: 0.125 MG; TIW; PO
     Route: 048
     Dates: start: 20070901, end: 20080101
  5. *FUROSEMIDE [Concomitant]
  6. WARFARIN [Concomitant]
  7. LISINOPRIL [Concomitant]
  8. SIMVASTATIN [Concomitant]
  9. POTASSIUM [Concomitant]
  10. ASPIRIN [Concomitant]
  11. METOPROLOL [Concomitant]

REACTIONS (22)
  - MULTIPLE INJURIES [None]
  - MENTAL STATUS CHANGES [None]
  - PERIPHERAL VASCULAR DISORDER [None]
  - ARTERIAL THROMBOSIS [None]
  - EMBOLISM ARTERIAL [None]
  - CHOLELITHIASIS [None]
  - CEREBRAL INFARCTION [None]
  - INTRACARDIAC THROMBUS [None]
  - SHOCK HAEMORRHAGIC [None]
  - MOBILITY DECREASED [None]
  - RETROPERITONEAL HAEMATOMA [None]
  - HYPOTENSION [None]
  - PULMONARY HYPERTENSION [None]
  - CEREBRAL ISCHAEMIA [None]
  - GASTROINTESTINAL HAEMORRHAGE [None]
  - ECONOMIC PROBLEM [None]
  - BLOOD CREATININE INCREASED [None]
  - SOCIAL PROBLEM [None]
  - POST PROCEDURAL DISCHARGE [None]
  - PRODUCT QUALITY ISSUE [None]
  - POST PROCEDURAL COMPLICATION [None]
  - ISCHAEMIC CARDIOMYOPATHY [None]
